FAERS Safety Report 5472929-7 (Version None)
Quarter: 2007Q4

REPORT INFORMATION
  Report Type: 
  Country: None (occurrence: None)
  Receive Date: 20071001
  Receipt Date: 20070921
  Transmission Date: 20080405
  Serious: Yes (Life-Threatening, Hospitalization)
  Sender: FDA-Public Use
  Company Number: B0489081A

PATIENT
  Age: 63 Year
  Sex: Male

DRUGS (3)
  1. AUGMENTIN '125' [Suspect]
     Indication: PNEUMONIA
     Route: 048
     Dates: start: 20070501, end: 20070501
  2. TORSEMIDE [Concomitant]
     Dates: start: 20070501, end: 20070501
  3. ACETYLCYSTEINE [Concomitant]
     Dates: start: 20070501, end: 20070501

REACTIONS (4)
  - ERYTHEMA MULTIFORME [None]
  - GENERAL PHYSICAL HEALTH DETERIORATION [None]
  - RASH [None]
  - STEVENS-JOHNSON SYNDROME [None]
